FAERS Safety Report 11911356 (Version 2)
Quarter: 2016Q1

REPORT INFORMATION
  Report Type: Report from Study
  Country: KR (occurrence: KR)
  Receive Date: 20160112
  Receipt Date: 20160128
  Transmission Date: 20160526
  Serious: Yes (Death, Hospitalization)
  Sender: FDA-Public Use
  Company Number: KR-ELI_LILLY_AND_COMPANY-KR201512009451

PATIENT
  Age: 73 Year
  Sex: Male
  Weight: 51.3 kg

DRUGS (5)
  1. PACLITAXEL. [Concomitant]
     Active Substance: PACLITAXEL
     Indication: GASTRIC CANCER
     Dosage: 30 MG, UNK
     Route: 042
     Dates: start: 20151222, end: 20151222
  2. GASTER [Concomitant]
     Active Substance: FAMOTIDINE
     Indication: GASTRIC CANCER
     Dosage: 20 MG, UNK
     Route: 042
     Dates: start: 20151222, end: 20151222
  3. PENIRAMIN [Concomitant]
     Indication: GASTRIC CANCER
     Dosage: 4 MG, UNK
     Dates: start: 20151222, end: 20151222
  4. CYRAMZA [Suspect]
     Active Substance: RAMUCIRUMAB
     Indication: GASTRIC CANCER
     Dosage: 8 MG/KG, Q2W
     Route: 042
     Dates: start: 20151222, end: 20151222
  5. DEXAMETHASONE. [Concomitant]
     Active Substance: DEXAMETHASONE
     Indication: GASTRIC CANCER
     Dosage: 5 MG, UNK
     Dates: start: 20151222, end: 20151222

REACTIONS (1)
  - Abdominal pain [Fatal]

NARRATIVE: CASE EVENT DATE: 20151227
